FAERS Safety Report 11891093 (Version 5)
Quarter: 2018Q3

REPORT INFORMATION
  Report Type: Spontaneous
  Country: FR (occurrence: FR)
  Receive Date: 20160106
  Receipt Date: 20180823
  Transmission Date: 20181010
  Serious: Yes (Life-Threatening, Hospitalization)
  Sender: FDA-Public Use
  Company Number: FR-ROCHE-1675349

PATIENT
  Age: 68 Year
  Sex: Female
  Weight: 59 kg

DRUGS (15)
  1. INEXIUM [Concomitant]
     Active Substance: ESOMEPRAZOLE
     Route: 065
  2. KLIPAL [Concomitant]
     Active Substance: ACETAMINOPHEN\CODEINE PHOSPHATE
     Dosage: 1 TO 5/DAY
     Route: 065
  3. LEVOTHYROXINE. [Concomitant]
     Active Substance: LEVOTHYROXINE
  4. PARACETAMOL [Concomitant]
     Active Substance: ACETAMINOPHEN
  5. SALAZOPYRINE [Concomitant]
     Active Substance: SULFASALAZINE
     Route: 065
  6. UVEDOSE [Concomitant]
     Active Substance: CHOLECALCIFEROL
  7. BECILAN [Concomitant]
     Active Substance: PYRIDOXINE
     Route: 065
  8. METHOTREXATE. [Concomitant]
     Active Substance: METHOTREXATE
     Dosage: ADMINISTERED ON SATURDAYS
     Route: 065
  9. LEVOTHYROX [Concomitant]
     Active Substance: LEVOTHYROXINE
     Route: 065
  10. LYRICA [Concomitant]
     Active Substance: PREGABALIN
     Route: 065
  11. SPECIAFOLDINE [Concomitant]
     Active Substance: FOLIC ACID
     Route: 065
  12. FLECTOR [Concomitant]
     Active Substance: DICLOFENAC EPOLAMINE
     Route: 065
  13. PLAQUENIL [Concomitant]
     Active Substance: HYDROXYCHLOROQUINE SULFATE
     Route: 065
  14. ROACTEMRA [Suspect]
     Active Substance: TOCILIZUMAB
     Indication: RHEUMATOID ARTHRITIS
     Dosage: PREVIOUS TO THIS SHE RECEIVED TOCILIZUMAB IN 2010/2011
     Route: 042
     Dates: start: 20151126, end: 20151126
  15. CORTANCYL [Concomitant]
     Active Substance: PREDNISONE

REACTIONS (3)
  - Encephalitis [Recovering/Resolving]
  - Disturbance in attention [Recovering/Resolving]
  - Cognitive disorder [Recovering/Resolving]

NARRATIVE: CASE EVENT DATE: 20151128
